APPROVED DRUG PRODUCT: FLUOXETINE HYDROCHLORIDE
Active Ingredient: FLUOXETINE HYDROCHLORIDE
Strength: EQ 40MG BASE
Dosage Form/Route: CAPSULE;ORAL
Application: A206993 | Product #003 | TE Code: AB
Applicant: CADILA PHARMACEUTICALS LTD
Approved: May 23, 2019 | RLD: No | RS: No | Type: RX